FAERS Safety Report 24735353 (Version 1)
Quarter: 2024Q4

REPORT INFORMATION
  Report Type: Spontaneous
  Country: US (occurrence: US)
  Receive Date: 20241215
  Receipt Date: 20241215
  Transmission Date: 20250115
  Serious: No
  Sender: SUNOVION
  Company Number: US-SUMITOMO PHARMA SWITZERLAND GMBH-2024SPA005624

PATIENT

DRUGS (5)
  1. ORGOVYX [Suspect]
     Active Substance: RELUGOLIX
     Indication: Prostate cancer
     Dosage: 360 MG, SINGLE
     Route: 048
     Dates: start: 20240817, end: 20240817
  2. ORGOVYX [Suspect]
     Active Substance: RELUGOLIX
     Dosage: 120 MG, QD
     Route: 048
     Dates: start: 20240817, end: 20241001
  3. MINERALS\VITAMINS [Concomitant]
     Active Substance: MINERALS\VITAMINS
     Indication: Supplementation therapy
     Dosage: 1 DF, QOD (ONE PILL 3 TIMES A WEEK, EVERY OTHER DAY)
     Route: 048
  4. VITAMIN B COMPLEX PLUS [Concomitant]
     Indication: Supplementation therapy
     Dosage: 1 DF, QOD (ONE PILL 3 TIMES A WEEK, EVERY OTHER DAY)
     Route: 048
  5. PROBIOTICS NOS [Concomitant]
     Active Substance: PROBIOTICS NOS
     Indication: Supplementation therapy
     Dosage: 1 DF, QOD (ONE PILL 3 TIMES A WEEK, EVERY OTHER DAY)
     Route: 048

REACTIONS (5)
  - Herpes zoster [Unknown]
  - Weight decreased [Unknown]
  - Fatigue [Unknown]
  - Urticaria [Unknown]
  - Hot flush [Unknown]
